FAERS Safety Report 13345685 (Version 3)
Quarter: 2017Q2

REPORT INFORMATION
  Report Type: Spontaneous
  Country: US (occurrence: US)
  Receive Date: 20170317
  Receipt Date: 20170424
  Transmission Date: 20170830
  Serious: Yes (Other)
  Sender: FDA-Public Use
  Company Number: US-BAYER-2017-049442

PATIENT
  Age: 40 Year
  Sex: Female
  Weight: 102.9 kg

DRUGS (1)
  1. SKYLA [Suspect]
     Active Substance: LEVONORGESTREL
     Indication: CONTRACEPTION
     Dosage: 14 MCG/24HR, CONT
     Route: 015
     Dates: start: 20170313, end: 20170316

REACTIONS (5)
  - Uterine perforation [Recovered/Resolved]
  - Abdominal pain lower [Recovered/Resolved]
  - Post procedural haemorrhage [Recovered/Resolved]
  - Procedural pain [Recovered/Resolved]
  - Procedural dizziness [Recovered/Resolved]

NARRATIVE: CASE EVENT DATE: 20170313
